FAERS Safety Report 24125658 (Version 1)
Quarter: 2024Q3

REPORT INFORMATION
  Report Type: Spontaneous
  Country: CA (occurrence: CA)
  Receive Date: 20240723
  Receipt Date: 20240723
  Transmission Date: 20241016
  Serious: Yes (Other)
  Sender: PFIZER
  Company Number: CA-PFIZER INC-202200457462

PATIENT
  Age: 54 Year
  Sex: Female
  Weight: 52.2 kg

DRUGS (7)
  1. IBRANCE [Suspect]
     Active Substance: PALBOCICLIB
     Dosage: 75 MG
     Dates: start: 20211008
  2. IBRANCE [Suspect]
     Active Substance: PALBOCICLIB
     Dosage: 75 MG, OD FOR 21DAYS ON, 7 DAYS OFF
     Route: 048
  3. ESCITALOPRAM [Concomitant]
     Active Substance: ESCITALOPRAM OXALATE
     Dosage: 20 MG, DAILY
  4. FULVESTRANT [Concomitant]
     Active Substance: FULVESTRANT
     Dosage: UNK
  5. LETROZOLE [Concomitant]
     Active Substance: LETROZOLE
     Dosage: UNK
     Dates: start: 202110
  6. GOSERELIN [Concomitant]
     Active Substance: GOSERELIN
     Dosage: UNK, Q3 MONTHS
     Dates: start: 202109
  7. ZOMETA [Concomitant]
     Active Substance: ZOLEDRONIC ACID
     Dosage: UNK
     Dates: start: 202109

REACTIONS (9)
  - Neutropenia [Not Recovered/Not Resolved]
  - Heart rate decreased [Unknown]
  - Product dose omission issue [Unknown]
  - Blood pressure systolic increased [Recovered/Resolved]
  - White blood cell count decreased [Recovered/Resolved]
  - Haemoglobin decreased [Recovering/Resolving]
  - Weight increased [Not Recovered/Not Resolved]
  - Body mass index increased [Not Recovered/Not Resolved]
  - Body surface area increased [Not Recovered/Not Resolved]

NARRATIVE: CASE EVENT DATE: 20240718
